FAERS Safety Report 5378669-7 (Version None)
Quarter: 2007Q3

REPORT INFORMATION
  Report Type: 
  Country: None (occurrence: None)
  Receive Date: 20070705
  Receipt Date: 20070625
  Transmission Date: 20080115
  Serious: Yes (Disabling, Other)
  Sender: FDA-Public Use
  Company Number: B0468860A

PATIENT
  Age: 73 Year
  Sex: Male
  Weight: 70 kg

DRUGS (9)
  1. NIQUITIN CQ LOZENGE [Suspect]
     Dosage: 2MG PER DAY
     Route: 002
     Dates: start: 20060108
  2. ZESTRIL [Concomitant]
     Indication: HYPERTENSION
     Dosage: 20MG IN THE MORNING
  3. IMDUR [Concomitant]
     Indication: PAIN
     Dosage: 60MG IN THE MORNING
     Route: 065
  4. DILZEM [Concomitant]
     Indication: PAIN
     Dosage: 180MG PER DAY
     Route: 065
  5. NU-SEALS ASPIRIN [Concomitant]
     Indication: PAIN
     Dosage: 75MG PER DAY
     Route: 065
  6. GLUCOPHAGE [Concomitant]
     Indication: DIABETES MELLITUS
     Dosage: 500MG THREE TIMES PER DAY
     Route: 065
  7. DIAMICRON [Concomitant]
     Indication: DIABETES MELLITUS
     Dosage: 120MG TWICE PER DAY
     Route: 065
  8. LOSEC [Concomitant]
     Dosage: 20MG PER DAY
     Route: 065
  9. ZOCOR [Concomitant]
     Dosage: 20MG PER DAY
     Route: 065

REACTIONS (3)
  - BLOOD GLUCOSE INCREASED [None]
  - DIABETES MELLITUS [None]
  - HYPERGLYCAEMIA [None]
